FAERS Safety Report 5500751-1 (Version None)
Quarter: 2007Q4

REPORT INFORMATION
  Report Type: 
  Country: None (occurrence: None)
  Receive Date: 20071019
  Receipt Date: 20070910
  Transmission Date: 20080405
  Serious: Yes (Other)
  Sender: FDA-Public Use
  Company Number: HQWYE154513SEP07

PATIENT
  Age: 84 Year
  Sex: Female
  Weight: 81.72 kg

DRUGS (6)
  1. ADVIL PM [Suspect]
     Indication: INSOMNIA
     Dosage: 1 CAPSULE 1X PER 1 DAY, ORAL
     Route: 048
     Dates: start: 20070907, end: 20070908
  2. ADVIL PM [Suspect]
     Indication: SCIATICA
     Dosage: 1 CAPSULE 1X PER 1 DAY, ORAL
     Route: 048
     Dates: start: 20070907, end: 20070908
  3. CELEBREX [Concomitant]
  4. ALLEGRA (FEXOFENADINE HYDROCHLORIDE) [Concomitant]
  5. ZOCOR [Concomitant]
  6. FOSAMAX [Concomitant]

REACTIONS (4)
  - COUGH [None]
  - DYSGEUSIA [None]
  - RETCHING [None]
  - THROAT IRRITATION [None]
